FAERS Safety Report 21297024 (Version 1)
Quarter: 2022Q3

REPORT INFORMATION
  Report Type: Spontaneous
  Country: DE (occurrence: DE)
  Receive Date: 20220906
  Receipt Date: 20220906
  Transmission Date: 20221027
  Serious: Yes (Congenital Anomaly)
  Sender: FDA-Public Use
  Company Number: DE-EMBRYOTOX-202203742

PATIENT
  Age: 0 Year
  Sex: Male
  Weight: 3.43 kg

DRUGS (3)
  1. AZATHIOPRINE [Suspect]
     Active Substance: AZATHIOPRINE
     Indication: Crohn^s disease
     Dosage: 50 MILLIGRAM DAILY; UNIT DOSE : 50 MG, FREQUENCY TIME : 1 DAYS, THERAPY DURATION : 261  DAYS
     Route: 065
     Dates: start: 20210601, end: 20220217
  2. DULOXETINE [Suspect]
     Active Substance: DULOXETINE
     Indication: Depression
     Dosage: 60 MG/D INITIAL 60MG DAILY, DOSAGE REDUCED TO 30MG DAILY FROM WEEK 32+4, THERAPY DURATION : 261 DAYS
     Route: 065
     Dates: start: 20210601, end: 20220217
  3. PROTAPHANE [Concomitant]
     Active Substance: INSULIN HUMAN
     Indication: Gestational diabetes
     Dosage: 14 [IE/D (8-0-0-6) ], UNIT DOSE   : 14 IU, FREQUENCY TIME : 1 DAYS

REACTIONS (2)
  - Ventricular septal defect [Not Recovered/Not Resolved]
  - Foetal exposure during pregnancy [Unknown]
